FAERS Safety Report 9420640 (Version 1)
Quarter: 2013Q3

REPORT INFORMATION
  Report Type: Spontaneous
  Country: US (occurrence: US)
  Receive Date: 20130725
  Receipt Date: 20130725
  Transmission Date: 20140515
  Serious: No
  Sender: FDA-Public Use
  Company Number: US-ABBOTT-13P-163-1094031-00

PATIENT
  Age: 59 Year
  Sex: Female
  Weight: 54.48 kg

DRUGS (2)
  1. SYNTHROID [Suspect]
     Indication: AUTOIMMUNE THYROIDITIS
     Dates: start: 1976, end: 201305
  2. SYNTHROID [Suspect]
     Dates: start: 201305

REACTIONS (4)
  - Headache [Recovering/Resolving]
  - Palpitations [Recovering/Resolving]
  - Fatigue [Recovering/Resolving]
  - Insomnia [Recovering/Resolving]
